FAERS Safety Report 10093566 (Version 1)
Quarter: 2014Q2

REPORT INFORMATION
  Report Type: Spontaneous
  Country: US (occurrence: US)
  Receive Date: 20140421
  Receipt Date: 20140421
  Transmission Date: 20141212
  Serious: No
  Sender: FDA-Public Use
  Company Number: US-SA-2014SA006693

PATIENT
  Age: 36 Year
  Sex: Male

DRUGS (1)
  1. ALLEGRA 24 HOUR [Suspect]
     Indication: HYPERSENSITIVITY
     Dosage: THERAPY STARTED TWO WEEKS AGO
     Route: 048
     Dates: end: 20140115

REACTIONS (2)
  - Condition aggravated [Unknown]
  - Drug ineffective [Unknown]
